FAERS Safety Report 10133385 (Version 1)
Quarter: 2014Q2

REPORT INFORMATION
  Report Type: Spontaneous
  Country: GB (occurrence: GB)
  Receive Date: 20140428
  Receipt Date: 20140428
  Transmission Date: 20141212
  Serious: Yes (Other)
  Sender: FDA-Public Use
  Company Number: GB-TEVA-477133ISR

PATIENT
  Age: 52 Year
  Sex: Female
  Weight: 106 kg

DRUGS (3)
  1. SERTRALINE [Suspect]
     Indication: DEPRESSION
     Route: 048
     Dates: start: 20030901
  2. NAPROXEN [Concomitant]
  3. OMEPRAZOLE [Concomitant]

REACTIONS (1)
  - Lipidosis [Unknown]
